FAERS Safety Report 5133792-7 (Version None)
Quarter: 2006Q4

REPORT INFORMATION
  Report Type: 
  Country: None (occurrence: None)
  Receive Date: 20061018
  Receipt Date: 20061004
  Transmission Date: 20070319
  Serious: Yes (Other)
  Sender: FDA-Public Use
  Company Number: 148430USA

PATIENT
  Age: 53 Year
  Sex: Male

DRUGS (4)
  1. CYCLOSPORINE [Suspect]
     Indication: PROPHYLAXIS AGAINST GRAFT VERSUS HOST DISEASE
     Dosage: 3 MG/KG/DAY,
  2. CYCLOPHOSPHAMIDE [Suspect]
     Dosage: 120MG/KG
  3. FLUDARABINE PHOSPHATE [Suspect]
     Dosage: 125MG/M
  4. MYCOPHENOLATE MOFETIL [Concomitant]

REACTIONS (3)
  - BASAL CELL CARCINOMA [None]
  - GRAFT VERSUS HOST DISEASE [None]
  - MALIGNANT MELANOMA [None]
